FAERS Safety Report 7131991-6 (Version None)
Quarter: 2010Q4

REPORT INFORMATION
  Report Type: 
  Country: None (occurrence: None)
  Receive Date: 20101202
  Receipt Date: 20101123
  Transmission Date: 20110411
  Serious: Yes (Hospitalization, Other)
  Sender: FDA-Public Use
  Company Number: BR-ASTRAZENECA-2010SE06344

PATIENT
  Age: 88 Year
  Sex: Female
  Weight: 69 kg

DRUGS (10)
  1. ATACAND [Suspect]
     Indication: HYPERTENSION
     Route: 048
     Dates: start: 20080101, end: 20100209
  2. ATACAND [Suspect]
     Route: 048
     Dates: start: 20100201
  3. ATACAND [Suspect]
     Route: 048
  4. SOMALGIN [Concomitant]
     Indication: ANTIPLATELET THERAPY
     Route: 048
     Dates: start: 20030101
  5. PLAVIX [Concomitant]
     Indication: ANTICOAGULANT THERAPY
     Route: 048
     Dates: start: 20070101
  6. METILDOPA [Concomitant]
     Indication: HYPERTENSION
     Route: 048
     Dates: start: 20070101
  7. METILDOPA [Concomitant]
     Dosage: HALF A TABLET TWICE A DAY
     Route: 048
  8. LIPITOR [Concomitant]
     Indication: HYPERCHOLESTEROLAEMIA
     Route: 048
     Dates: start: 20070101
  9. PURAN T4 [Concomitant]
     Indication: HYPOTHYROIDISM
     Route: 048
     Dates: start: 19800101
  10. PANTOZOL [Concomitant]
     Indication: PROPHYLAXIS AGAINST GASTROINTESTINAL ULCER
     Route: 048
     Dates: start: 20080101

REACTIONS (2)
  - BLOOD PRESSURE ABNORMAL [None]
  - HEART RATE IRREGULAR [None]
